FAERS Safety Report 8826293 (Version 1)
Quarter: 2012Q4

REPORT INFORMATION
  Report Type: 
  Country: US (occurrence: US)
  Receive Date: 20121005
  Receipt Date: 20121005
  Transmission Date: 20130627
  Serious: Yes (Other)
  Sender: FDA-Public Use
  Company Number: US-BRISTOL-MYERS SQUIBB COMPANY-16998866

PATIENT
  Age: 79 Year
  Sex: Female

DRUGS (3)
  1. COUMADIN [Suspect]
     Dates: start: 20110822
  2. REVLIMID [Suspect]
     Indication: MULTIPLE MYELOMA
     Dosage: Daily dose: 21 -2
     Route: 048
     Dates: start: 20100128
  3. TOPROL [Suspect]
     Dates: start: 20110423

REACTIONS (3)
  - Rectal haemorrhage [Unknown]
  - Dyspnoea [Unknown]
  - Diarrhoea [Unknown]
